FAERS Safety Report 8086065-7 (Version None)
Quarter: 2012Q1

REPORT INFORMATION
  Report Type: 
  Country: None (occurrence: None)
  Receive Date: 20120128
  Receipt Date: 20110610
  Transmission Date: 20120608
  Serious: No
  Sender: FDA-Public Use
  Company Number: US-ABBOTT-11P-163-0731631-00

PATIENT
  Sex: Female

DRUGS (5)
  1. XISAXAN [Concomitant]
     Indication: CROHN'S DISEASE
  2. HUMIRA [Suspect]
  3. ENTOCORT EC [Concomitant]
     Indication: CROHN'S DISEASE
     Dosage: DAILY
  4. HUMIRA [Suspect]
     Indication: CROHN'S DISEASE
     Dosage: DAY ONE
     Route: 058
     Dates: start: 20110602, end: 20110602
  5. ASACOL HD [Concomitant]
     Indication: CROHN'S DISEASE

REACTIONS (3)
  - INJECTION SITE PAIN [None]
  - INJECTION SITE ERYTHEMA [None]
  - INJECTION SITE HAEMATOMA [None]
